FAERS Safety Report 8140657-5 (Version None)
Quarter: 2012Q1

REPORT INFORMATION
  Report Type: 
  Country: None (occurrence: None)
  Receive Date: 20120216
  Receipt Date: 20120207
  Transmission Date: 20120608
  Serious: Yes (Other)
  Sender: FDA-Public Use
  Company Number: AU-JNJFOC-20120202832

PATIENT
  Sex: Female

DRUGS (2)
  1. STELARA [Suspect]
     Route: 058
     Dates: start: 20101125
  2. STELARA [Suspect]
     Indication: PSORIASIS
     Route: 058
     Dates: start: 20101223, end: 20110814

REACTIONS (1)
  - TYPE 2 DIABETES MELLITUS [None]
